FAERS Safety Report 17060476 (Version 1)
Quarter: 2019Q4

REPORT INFORMATION
  Report Type: Spontaneous
  Country: FR (occurrence: FR)
  Receive Date: 20191121
  Receipt Date: 20191121
  Transmission Date: 20200122
  Serious: Yes (Congenital Anomaly, Other)
  Sender: FDA-Public Use
  Company Number: FR-MYLANLABS-2019M1111143

PATIENT

DRUGS (1)
  1. LEVETIRACETAM. [Suspect]
     Active Substance: LEVETIRACETAM
     Indication: EPILEPSY
     Dosage: UNKNOWN DOSE
     Route: 064

REACTIONS (10)
  - Motor developmental delay [Unknown]
  - Foetal exposure during pregnancy [Recovered/Resolved]
  - Congenital anomaly [Unknown]
  - Amniotic cavity infection [Unknown]
  - Patent ductus arteriosus [Unknown]
  - Foetal distress syndrome [Unknown]
  - Umbilical cord abnormality [Unknown]
  - Neonatal hypoxia [Unknown]
  - Respiratory distress [Unknown]
  - Arrhythmia [Unknown]
